FAERS Safety Report 4638320-8 (Version None)
Quarter: 2005Q2

REPORT INFORMATION
  Report Type: 
  Country: None (occurrence: None)
  Receive Date: 20050418
  Receipt Date: 20050411
  Transmission Date: 20051028
  Serious: Yes (Hospitalization)
  Sender: FDA-Public Use
  Company Number: US-MERCK-0504USA01539

PATIENT

DRUGS (1)
  1. ZOCOR [Suspect]
     Route: 048
     Dates: start: 20020401

REACTIONS (1)
  - LIVER DISORDER [None]
